FAERS Safety Report 11220409 (Version 1)
Quarter: 2015Q2

REPORT INFORMATION
  Report Type: Spontaneous
  Country: US (occurrence: None)
  Receive Date: 20150625
  Receipt Date: 20150625
  Transmission Date: 20150821
  Serious: Yes (Hospitalization)
  Sender: FDA-Public Use
  Company Number: None

PATIENT
  Age: 41 Year
  Sex: Female
  Weight: 86.18 kg

DRUGS (2)
  1. CARBOPLATIN. [Suspect]
     Active Substance: CARBOPLATIN
     Dates: end: 20150602
  2. TAXOL [Suspect]
     Active Substance: PACLITAXEL
     Dates: end: 20150602

REACTIONS (3)
  - Dysuria [None]
  - Flank pain [None]
  - Pyrexia [None]

NARRATIVE: CASE EVENT DATE: 20150608
